FAERS Safety Report 11679753 (Version 2)
Quarter: 2015Q4

REPORT INFORMATION
  Report Type: Spontaneous
  Country: US (occurrence: US)
  Receive Date: 20151027
  Receipt Date: 20151104
  Transmission Date: 20160304
  Serious: No
  Sender: FDA-Public Use
  Company Number: US-ELI_LILLY_AND_COMPANY-US201002002930

PATIENT
  Sex: Male

DRUGS (4)
  1. FORTEO [Suspect]
     Active Substance: TERIPARATIDE
     Indication: OSTEOPOROSIS
     Dosage: 20 UG, DAILY (1/D)
     Dates: start: 20100116
  2. TUMS [Concomitant]
     Active Substance: CALCIUM CARBONATE
  3. PREDNISONE. [Concomitant]
     Active Substance: PREDNISONE
     Dosage: UNK, UNKNOWN
     Dates: start: 200808
  4. FORTEO [Suspect]
     Active Substance: TERIPARATIDE
     Dosage: 20 UG, DAILY (1/D)

REACTIONS (11)
  - Fatigue [Unknown]
  - Increased tendency to bruise [Unknown]
  - Pain [Unknown]
  - Muscular weakness [Unknown]
  - Myasthenia gravis [Unknown]
  - Posture abnormal [Recovered/Resolved]
  - Bone disorder [Unknown]
  - Blood calcium increased [Recovered/Resolved]
  - Abasia [Recovered/Resolved]
  - Extraocular muscle paresis [Unknown]
  - Muscle spasms [Unknown]

NARRATIVE: CASE EVENT DATE: 2010
